FAERS Safety Report 9034190 (Version 1)
Quarter: 2013Q1

REPORT INFORMATION
  Report Type: Spontaneous
  Country: US (occurrence: None)
  Receive Date: 20130116
  Receipt Date: 20130116
  Transmission Date: 20140127
  Serious: Yes (Life-Threatening, Hospitalization)
  Sender: FDA-Public Use
  Company Number: None

PATIENT
  Age: 46 Year
  Sex: Male
  Weight: 65.2 kg

DRUGS (1)
  1. IPILIMUMAB [Suspect]

REACTIONS (2)
  - Cardiac tamponade [None]
  - Malignant pleural effusion [None]
